FAERS Safety Report 7640965-8 (Version None)
Quarter: 2011Q3

REPORT INFORMATION
  Report Type: 
  Country: None (occurrence: None)
  Receive Date: 20110728
  Receipt Date: 20110725
  Transmission Date: 20111222
  Serious: Yes (Other)
  Sender: FDA-Public Use
  Company Number: US-BAYER-2011-065236

PATIENT
  Age: 28 Year
  Sex: Female

DRUGS (2)
  1. YASMIN [Suspect]
     Dosage: UNK
     Dates: start: 20091006, end: 20091201
  2. YAZ [Suspect]
     Dosage: UNK
     Dates: start: 20081014, end: 20091006

REACTIONS (1)
  - CHOLECYSTECTOMY [None]
